FAERS Safety Report 9089853 (Version 1)
Quarter: 2013Q1

REPORT INFORMATION
  Report Type: Spontaneous
  Country: US (occurrence: US)
  Receive Date: 20130201
  Receipt Date: 20130201
  Transmission Date: 20140127
  Serious: Yes (Other)
  Sender: FDA-Public Use
  Company Number: US-ELI_LILLY_AND_COMPANY-US201301007209

PATIENT
  Sex: Female
  Weight: 111 kg

DRUGS (12)
  1. BYETTA [Suspect]
     Indication: INSULIN-REQUIRING TYPE 2 DIABETES MELLITUS
     Dosage: 5 UG, BID
     Route: 058
  2. BYETTA [Suspect]
     Dosage: 10 UG, BID
     Route: 058
  3. LANTUS [Concomitant]
     Indication: INSULIN-REQUIRING TYPE 2 DIABETES MELLITUS
     Dosage: 48 U, EACH MORNING
     Route: 058
  4. LANTUS [Concomitant]
     Dosage: 36 U, EACH MORNING
     Route: 058
  5. METOPROLOL [Concomitant]
     Indication: HYPERTENSION
     Dosage: 150 MG, QD
     Route: 048
  6. LIPITOR [Concomitant]
     Dosage: 5 MG, QD
     Route: 048
  7. FUROSEMIDE [Concomitant]
     Dosage: 40 MG, QD
     Route: 048
  8. SPIRONOLACTONE ALTIZIDE IVAX [Concomitant]
     Dosage: 100 MG, QD
     Route: 048
  9. AMLODIPINE BESYLATE W/BENAZEPRIL HYDROCHLOR. [Concomitant]
     Indication: HYPERTENSION
     Dosage: UNK UNK, QD
     Route: 048
  10. ASPIRIN                                 /USA/ [Concomitant]
     Dosage: 81 MG, QD
     Route: 048
  11. BIOTIN [Concomitant]
     Dosage: 1000 UG, QD
     Route: 048
  12. CENTRUM [Concomitant]
     Dosage: 1 DF, QD
     Route: 048

REACTIONS (3)
  - Retinitis [Not Recovered/Not Resolved]
  - Visual acuity reduced [Unknown]
  - Weight increased [Unknown]
